FAERS Safety Report 23974267 (Version 3)
Quarter: 2024Q3

REPORT INFORMATION
  Report Type: Spontaneous
  Country: ZA (occurrence: ZA)
  Receive Date: 20240614
  Receipt Date: 20240729
  Transmission Date: 20241016
  Serious: Yes (Hospitalization, Other)
  Sender: GLAXOSMITHKLINE
  Company Number: ZA-GSK-ZA2024EME071676

PATIENT

DRUGS (3)
  1. DOLUTEGRAVIR [Suspect]
     Active Substance: DOLUTEGRAVIR
     Indication: HIV infection
     Dosage: UNK
     Dates: start: 2020
  2. LAMIVUDINE [Suspect]
     Active Substance: LAMIVUDINE
     Indication: HIV infection
     Dosage: UNK
     Dates: start: 2020
  3. TENOFOVIR DISOPROXIL FUMARATE [Suspect]
     Active Substance: TENOFOVIR DISOPROXIL FUMARATE
     Indication: HIV infection
     Dosage: UNK
     Dates: start: 2020

REACTIONS (13)
  - Syphilis [Unknown]
  - Malaise [Unknown]
  - Disseminated tuberculosis [Unknown]
  - Anaemia [Unknown]
  - CD4 lymphocytes decreased [Unknown]
  - Blood albumin abnormal [Unknown]
  - Blood HIV RNA increased [Unknown]
  - Vomiting [Unknown]
  - Premature delivery [Unknown]
  - Treatment noncompliance [Unknown]
  - Live birth [Unknown]
  - Exposure during pregnancy [Unknown]
  - Maternal exposure during breast feeding [Unknown]
